FAERS Safety Report 6233144-2 (Version None)
Quarter: 2009Q2

REPORT INFORMATION
  Report Type: 
  Country: None (occurrence: None)
  Receive Date: 20090617
  Receipt Date: 20090612
  Transmission Date: 20091009
  Serious: Yes (Hospitalization)
  Sender: FDA-Public Use
  Company Number: FR-RB-016834-09

PATIENT
  Sex: Male

DRUGS (3)
  1. SUBUTEX [Suspect]
     Indication: DRUG DEPENDENCE
     Dosage: DOSING INFORMATION UNKNOWN.
     Route: 065
  2. SUBUTEX [Suspect]
     Dosage: DOSING INFORMATION UNKNOWN.
     Route: 042
  3. SUBUTEX [Suspect]
     Dosage: DOSING INFORMATION UNKNOWN.
     Route: 045

REACTIONS (9)
  - ACUTE PSYCHOSIS [None]
  - AGGRESSION [None]
  - ANXIETY [None]
  - HALLUCINATION, VISUAL [None]
  - INCORRECT ROUTE OF DRUG ADMINISTRATION [None]
  - PERSECUTORY DELUSION [None]
  - SCHIZOPHRENIA [None]
  - SUBSTANCE ABUSE [None]
  - WITHDRAWAL SYNDROME [None]
